FAERS Safety Report 8344574 (Version 2)
Quarter: 2013Q2

REPORT INFORMATION
  Report Type: Spontaneous
  Country: US (occurrence: US)
  Receive Date: 20120119
  Receipt Date: 20130523
  Transmission Date: 20140414
  Serious: Yes (Hospitalization)
  Sender: FDA-Public Use
  Company Number: US-ASTRAZENECA-2011SE61242

PATIENT
  Age: 63 Year
  Sex: Female

DRUGS (3)
  1. NEXIUM [Suspect]
     Route: 048
     Dates: end: 201103
  2. NEXIUM [Suspect]
     Route: 048
  3. LIPITOR [Concomitant]

REACTIONS (11)
  - Back pain [Unknown]
  - Muscle strain [Unknown]
  - Urinary tract infection [Unknown]
  - Gastrooesophageal reflux disease [Unknown]
  - Dyspepsia [Unknown]
  - Back disorder [Unknown]
  - Pain [Unknown]
  - Renal disorder [Unknown]
  - Oesophageal disorder [Unknown]
  - Malaise [Unknown]
  - Drug dose omission [Unknown]
